FAERS Safety Report 6169271-8 (Version None)
Quarter: 2009Q2

REPORT INFORMATION
  Report Type: 
  Country: None (occurrence: None)
  Receive Date: 20090424
  Receipt Date: 20090408
  Transmission Date: 20091009
  Serious: Yes (Hospitalization, Other)
  Sender: FDA-Public Use
  Company Number: 2008002362

PATIENT
  Age: 51 Year
  Sex: Female

DRUGS (4)
  1. ZYRTEC [Suspect]
     Dosage: 10 MG (10 MG, 1 IN 1 D), ORAL
     Route: 048
  2. BENADRYL [Suspect]
     Dosage: INTRAVENOUS
     Route: 042
  3. CHANTIX [Suspect]
     Dosage: ORAL
     Route: 048
  4. HYDROCODONE (HYDROCODONE) [Concomitant]

REACTIONS (9)
  - DIZZINESS [None]
  - HYPERSENSITIVITY [None]
  - NAUSEA [None]
  - OROPHARYNGEAL PAIN [None]
  - POOR VENOUS ACCESS [None]
  - SKIN EXFOLIATION [None]
  - SOMNOLENCE [None]
  - TREMOR [None]
  - WHITE BLOOD CELL COUNT DECREASED [None]
